FAERS Safety Report 15036504 (Version 1)
Quarter: 2018Q2

REPORT INFORMATION
  Report Type: Spontaneous
  Country: GB (occurrence: GB)
  Receive Date: 20180620
  Receipt Date: 20180620
  Transmission Date: 20180711
  Serious: Yes (Life-Threatening, Other)
  Sender: FDA-Public Use
  Company Number: GB-SA-2018SA153332

PATIENT
  Age: 60 Year
  Sex: Female
  Weight: 79.8 kg

DRUGS (15)
  1. RIFAMPICIN [Suspect]
     Active Substance: RIFAMPIN
  2. CASSIA SENNA [Concomitant]
     Active Substance: HERBALS\SENNOSIDES
  3. METFORMIN [Concomitant]
     Active Substance: METFORMIN HYDROCHLORIDE
  4. SODIUM VALPROATE [Concomitant]
     Active Substance: VALPROATE SODIUM
  5. SIMVASTATIN. [Concomitant]
     Active Substance: SIMVASTATIN
  6. LANTUS [Concomitant]
     Active Substance: INSULIN GLARGINE
  7. RISPERIDONE. [Suspect]
     Active Substance: RISPERIDONE
     Dosage: 8 UNK
     Route: 048
     Dates: end: 20180503
  8. MOVICOL [Concomitant]
     Active Substance: POLYETHYLENE GLYCOL 3350\POTASSIUM CHLORIDE\SODIUM BICARBONATE\SODIUM CHLORIDE
  9. CETRABEN [LIGHT LIQUID PARAFFIN;WHITE SOFT PARAFFIN] [Concomitant]
  10. RISPERIDONE. [Suspect]
     Active Substance: RISPERIDONE
     Indication: PSYCHOTIC DISORDER
     Dosage: 4 MG
     Route: 048
     Dates: start: 20180328
  11. PYRIDOXINE [Concomitant]
     Active Substance: PYRIDOXINE
  12. DAPAGLIFLOZIN. [Concomitant]
     Active Substance: DAPAGLIFLOZIN
  13. CLOTRIMAZOLE. [Concomitant]
     Active Substance: CLOTRIMAZOLE
  14. DIAZEPAM. [Concomitant]
     Active Substance: DIAZEPAM
  15. SITAGLIPTIN [Concomitant]
     Active Substance: SITAGLIPTIN

REACTIONS (4)
  - Blood creatine phosphokinase increased [Recovered/Resolved]
  - Inhibitory drug interaction [Unknown]
  - Neuroleptic malignant syndrome [Recovered/Resolved]
  - Confusional state [Unknown]

NARRATIVE: CASE EVENT DATE: 20180503
